FAERS Safety Report 6099206-8 (Version None)
Quarter: 2009Q1

REPORT INFORMATION
  Report Type: 
  Country: None (occurrence: None)
  Receive Date: 20090225
  Receipt Date: 20090225
  Transmission Date: 20090719
  Serious: No
  Sender: FDA-Public Use
  Company Number: None

PATIENT
  Sex: Female
  Weight: 67.73 kg

DRUGS (9)
  1. POTASSIUM CHLORIDE SLOW REL. TAB (KCL SLOW RELEASE TAB) [Suspect]
     Dosage: 10MEQ TABLET SA 10 MEQ QAM ORAL
     Route: 048
     Dates: start: 20080922, end: 20090224
  2. AMBIEN [Concomitant]
  3. AZITHROMYCIN [Concomitant]
  4. ESTROGENS (CONJUGATED ESTROGENS) [Concomitant]
  5. HYDROCHLOROTHIAZIDE [Concomitant]
  6. NASONEX [Concomitant]
  7. OMEPRAZOLE [Concomitant]
  8. PROVENTIL HFA (ALBUTEROL INHALER HFA) [Concomitant]
  9. ZYRTEC [Concomitant]

REACTIONS (1)
  - GASTROINTESTINAL DISORDER [None]
